FAERS Safety Report 6979124-0 (Version None)
Quarter: 2010Q3

REPORT INFORMATION
  Report Type: 
  Country: None (occurrence: None)
  Receive Date: 20100913
  Receipt Date: 20100901
  Transmission Date: 20110219
  Serious: Yes (Hospitalization)
  Sender: FDA-Public Use
  Company Number: PHHY2010JP58014

PATIENT
  Age: 78 Year
  Sex: Female

DRUGS (8)
  1. DIOVAN [Suspect]
     Dosage: 80 MG, UNK
     Route: 048
  2. METFORMIN HCL [Suspect]
     Dosage: 500 MG, UNK
     Route: 048
  3. INDOMETHACIN SODIUM [Suspect]
     Dosage: 400 MG, UNK
     Route: 048
  4. AMLODIPINE [Concomitant]
     Dosage: 5 MG, UNK
     Route: 048
  5. SIMVASTATIN [Concomitant]
     Dosage: 5 MG, UNK
     Route: 048
  6. TACROLIMUS [Concomitant]
     Dosage: 1.5 MG, UNK
     Route: 048
  7. TOCOPHERYL NICOTINATE [Concomitant]
     Dosage: 300 MG, UNK
     Route: 048
  8. MECOBALAMIN [Concomitant]
     Dosage: 1500 UG, UNK

REACTIONS (3)
  - DISORIENTATION [None]
  - DYSARTHRIA [None]
  - HYPOGLYCAEMIA [None]
